FAERS Safety Report 6217825-2 (Version None)
Quarter: 2009Q2

REPORT INFORMATION
  Report Type: 
  Country: None (occurrence: None)
  Receive Date: 20090608
  Receipt Date: 20090527
  Transmission Date: 20091009
  Serious: Yes (Death, Other)
  Sender: FDA-Public Use
  Company Number: DE-AMGEN-UK342014

PATIENT
  Sex: Male
  Weight: 76 kg

DRUGS (8)
  1. MIMPARA [Suspect]
     Indication: HYPERPARATHYROIDISM SECONDARY
     Route: 048
     Dates: start: 20061215, end: 20070511
  2. VITARENAL [Concomitant]
     Route: 048
     Dates: start: 19971101
  3. SIMVASTATIN [Concomitant]
     Route: 048
  4. INSUMAN [Concomitant]
     Route: 058
  5. ACTRAPID INSULIN NOVO [Concomitant]
     Route: 058
  6. MARCUMAR [Concomitant]
     Route: 048
     Dates: start: 20070108
  7. OMEPRAZOLE [Concomitant]
     Route: 048
     Dates: start: 20070326
  8. NEORECORMON [Concomitant]
     Route: 058

REACTIONS (3)
  - CEREBROVASCULAR ACCIDENT [None]
  - DEATH [None]
  - DIARRHOEA [None]
